FAERS Safety Report 25429186 (Version 4)
Quarter: 2025Q4

REPORT INFORMATION
  Report Type: Report from Study
  Country: US (occurrence: US)
  Receive Date: 20250612
  Receipt Date: 20251207
  Transmission Date: 20260117
  Serious: Yes (Other)
  Sender: ABBVIE
  Company Number: US-ABBVIE-6262783

PATIENT
  Age: 57 Year
  Sex: Female
  Weight: 72 kg

DRUGS (6)
  1. SKYRIZI [Suspect]
     Active Substance: RISANKIZUMAB-RZAA
     Indication: Psoriasis
     Dosage: FORM STRENGTH: 150 MG. SOLUTION FOR INJECTION IN PRE-FILLED PEN
     Route: 058
     Dates: start: 20240223
  2. VALSARTAN AND HYDROCHLOROTHIAZIDE [Concomitant]
     Active Substance: HYDROCHLOROTHIAZIDE\VALSARTAN
     Indication: Blood pressure measurement
     Route: 048
     Dates: start: 20200120
  3. CITALOPRAM [Concomitant]
     Active Substance: CITALOPRAM
     Indication: Product used for unknown indication
     Dosage: PILL
     Route: 048
     Dates: start: 20200120
  4. PROPRANOLOL [Concomitant]
     Active Substance: PROPRANOLOL HYDROCHLORIDE
     Indication: Product used for unknown indication
     Dosage: PILL
     Route: 048
     Dates: start: 20200120
  5. ATORVASTATIN [Concomitant]
     Active Substance: ATORVASTATIN
     Indication: Product used for unknown indication
     Dosage: PILL
     Route: 048
     Dates: start: 20200120
  6. Protonil [Concomitant]
     Indication: Product used for unknown indication
     Dosage: PILL
     Route: 048
     Dates: start: 20200120

REACTIONS (2)
  - Basal cell carcinoma [Recovered/Resolved]
  - Psoriasis [Unknown]

NARRATIVE: CASE EVENT DATE: 20250601
